FAERS Safety Report 11928022 (Version 3)
Quarter: 2016Q2

REPORT INFORMATION
  Report Type: Spontaneous
  Country: US (occurrence: US)
  Receive Date: 20160119
  Receipt Date: 20160429
  Transmission Date: 20160815
  Serious: Yes (Hospitalization)
  Sender: FDA-Public Use
  Company Number: US-VERTEX PHARMACEUTICALS-2016-000273

PATIENT
  Age: 17 Year
  Sex: Male
  Weight: 72 kg

DRUGS (20)
  1. ADVAIR HFA [Concomitant]
     Active Substance: FLUTICASONE PROPIONATE\SALMETEROL XINAFOATE
     Dosage: 2 PUFFS WITH SPACER, BID
     Route: 055
  2. ZENPEP [Concomitant]
     Active Substance: PANCRELIPASE AMYLASE\PANCRELIPASE LIPASE\PANCRELIPASE PROTEASE
     Dosage: 6 CAPSULES, TID (WITH MEALS) AND 4 CAPSULES, TID (WITH SNACKS)
     Route: 048
  3. SINGULAIR [Concomitant]
     Active Substance: MONTELUKAST SODIUM
  4. MONTELUKAST [Concomitant]
     Active Substance: MONTELUKAST SODIUM
     Dosage: 1 DF, QD
  5. NOVOLOG [Concomitant]
     Active Substance: INSULIN ASPART
     Dosage: 1 UNIT PER 50 ABOVE AND 4 UNITS PER 200 ABOVE
  6. PULMOZYME [Concomitant]
     Active Substance: DORNASE ALFA
     Dosage: 1 VIAL, QD
     Route: 055
  7. PREVACID [Concomitant]
     Active Substance: LANSOPRAZOLE
     Dosage: 1 DF, QD
     Route: 048
  8. ORKAMBI [Suspect]
     Active Substance: IVACAFTOR\LUMACAFTOR
     Indication: CYSTIC FIBROSIS
     Dosage: 2 DF (400-250 MG), BID
     Route: 048
     Dates: start: 20150925
  9. NASONEX [Concomitant]
     Active Substance: MOMETASONE FUROATE
     Dosage: 2 SPRAYS IN BOTH NOSTRILS, QD
     Route: 055
  10. TYLENOL [Concomitant]
     Active Substance: ACETAMINOPHEN
     Indication: PYREXIA
     Dosage: UNK, PRN
  11. MIRALAX [Concomitant]
     Active Substance: POLYETHYLENE GLYCOL 3350
     Dosage: 17 G, QD
     Route: 048
  12. RANITIDINE. [Concomitant]
     Active Substance: RANITIDINE
  13. AQUADEKS [Concomitant]
     Active Substance: MINERALS\VITAMINS
     Dosage: 1 DF, QD
     Route: 048
  14. BOOST [Concomitant]
     Dosage: 2-3, QD
     Route: 048
  15. SODIUM CHLORIDE. [Concomitant]
     Active Substance: SODIUM CHLORIDE
     Dosage: 1 VIAL, BID
     Route: 055
  16. VITAMIN D3 [Concomitant]
     Active Substance: CHOLECALCIFEROL
     Dosage: 2 DF, BID
     Route: 048
  17. AQUADEKS [Concomitant]
     Active Substance: MINERALS\VITAMINS
     Dosage: 1 DF, BID
  18. LANTUS [Concomitant]
     Active Substance: INSULIN GLARGINE
     Dosage: 5 UT, QD
     Route: 058
  19. ZYVOX [Concomitant]
     Active Substance: LINEZOLID
  20. TYLENOL [Concomitant]
     Active Substance: ACETAMINOPHEN
     Indication: PAIN

REACTIONS (1)
  - Lung infection [Recovered/Resolved]

NARRATIVE: CASE EVENT DATE: 20151227
